FAERS Safety Report 6535881-9 (Version None)
Quarter: 2010Q1

REPORT INFORMATION
  Report Type: 
  Country: None (occurrence: None)
  Receive Date: 20100106
  Receipt Date: 20091221
  Transmission Date: 20100710
  Serious: Yes (Hospitalization)
  Sender: FDA-Public Use
  Company Number: 2009AL007986

PATIENT
  Age: 15 Year
  Sex: Female

DRUGS (2)
  1. IBUPROFEN [Suspect]
     Indication: HEADACHE
     Dosage: 200 MG;PO
     Route: 048
     Dates: start: 20091204
  2. PANDEMRIX [Concomitant]

REACTIONS (1)
  - ANGIOEDEMA [None]
